FAERS Safety Report 24283351 (Version 1)
Quarter: 2024Q3

REPORT INFORMATION
  Report Type: Spontaneous
  Country: US (occurrence: None)
  Receive Date: 20240903
  Receipt Date: 20240903
  Transmission Date: 20241017
  Serious: Yes (Death, Life-Threatening)
  Sender: Public
  Company Number: None

PATIENT
  Age: 48 Year
  Sex: Female
  Weight: 89.8 kg

DRUGS (1)
  1. OZEMPIC [Suspect]
     Active Substance: SEMAGLUTIDE
     Dates: start: 20240729

REACTIONS (10)
  - Nausea [None]
  - Vomiting [None]
  - Abdominal pain [None]
  - Constipation [None]
  - Colitis [None]
  - Sepsis [None]
  - Aspiration [None]
  - Intestinal ischaemia [None]
  - Intestinal perforation [None]
  - Pulse absent [None]

NARRATIVE: CASE EVENT DATE: 20240902
